FAERS Safety Report 5192829-X (Version None)
Quarter: 2006Q4

REPORT INFORMATION
  Report Type: 
  Country: None (occurrence: None)
  Receive Date: 20061228
  Receipt Date: 20051128
  Transmission Date: 20070319
  Serious: No
  Sender: FDA-Public Use
  Company Number: US-GLAXOSMITHKLINE-A0583683A

PATIENT
  Age: 64 Year
  Sex: Female

DRUGS (7)
  1. FLONASE [Suspect]
     Dosage: 1SPR TWICE PER DAY
     Route: 045
  2. FEXOFENADINE [Concomitant]
  3. LIPITOR [Concomitant]
  4. DIURETIC [Concomitant]
  5. DICYCLOMINE [Concomitant]
  6. ZOLOFT [Concomitant]
  7. MOBIC [Concomitant]

REACTIONS (3)
  - DRUG INEFFECTIVE [None]
  - NASAL CONGESTION [None]
  - PHARMACEUTICAL PRODUCT COMPLAINT [None]
